FAERS Safety Report 9259316 (Version 1)
Quarter: 2013Q2

REPORT INFORMATION
  Report Type: Spontaneous
  Country: IT (occurrence: IT)
  Receive Date: 20130427
  Receipt Date: 20130427
  Transmission Date: 20140414
  Serious: Yes (Hospitalization)
  Sender: FDA-Public Use
  Company Number: IT-ROCHE-1217676

PATIENT
  Age: 64 Year
  Sex: Female

DRUGS (1)
  1. ROCEPHIN [Suspect]
     Indication: OSTEOMYELITIS
     Route: 030
     Dates: start: 20120530, end: 20120623

REACTIONS (3)
  - Pyrexia [Recovered/Resolved]
  - Rash [Recovered/Resolved]
  - Vasculitis [Recovered/Resolved]
